FAERS Safety Report 8815862 (Version 2)
Quarter: 2012Q4

REPORT INFORMATION
  Report Type: 
  Country: JP (occurrence: JP)
  Receive Date: 20120928
  Receipt Date: 20121109
  Transmission Date: 20130627
  Serious: Yes (Other)
  Sender: FDA-Public Use
  Company Number: JP-ROCHE-1137201

PATIENT
  Age: 56 Year
  Sex: Male

DRUGS (4)
  1. PEGASYS [Suspect]
     Indication: HEPATIC NEOPLASM MALIGNANT
     Route: 058
     Dates: start: 2009
  2. PEGASYS [Suspect]
     Indication: OFF LABEL USE
     Route: 058
  3. 5-FU [Suspect]
     Indication: HEPATIC NEOPLASM MALIGNANT
     Route: 042
  4. UFT [Suspect]
     Indication: PRODUCT USED FOR UNKNOWN INDICATION
     Dosage: Dosage is uncertain
     Route: 065
     Dates: start: 2009

REACTIONS (2)
  - Hepatic cancer [Recovering/Resolving]
  - Shock haemorrhagic [Recovering/Resolving]
